FAERS Safety Report 6809653-1 (Version None)
Quarter: 2010Q2

REPORT INFORMATION
  Report Type: 
  Country: None (occurrence: None)
  Receive Date: 20100630
  Receipt Date: 20100618
  Transmission Date: 20101027
  Serious: Yes (Other)
  Sender: FDA-Public Use
  Company Number: US-PFIZER INC-2002002292

PATIENT
  Sex: Female
  Weight: 55.78 kg

DRUGS (9)
  1. GEODON [Suspect]
     Indication: ANXIETY
     Dosage: UNK
     Route: 048
  2. GEODON [Suspect]
     Indication: THINKING ABNORMAL
  3. GEODON [Suspect]
     Indication: PSYCHOTIC DISORDER
  4. PROMETHAZINE [Suspect]
     Indication: NAUSEA
     Dosage: UNK
     Route: 048
     Dates: start: 20020719
  5. PROMETHAZINE [Suspect]
     Indication: VOMITING
     Dosage: UNK
     Route: 054
  6. SEROQUEL [Suspect]
     Indication: PSYCHOTIC DISORDER
     Dosage: UNK
     Route: 048
  7. ZYPREXA [Suspect]
     Indication: PSYCHOTIC DISORDER
     Dosage: UNK
     Route: 048
  8. TRAZODONE [Concomitant]
     Indication: SLEEP DISORDER
     Dosage: 200 MG, 1X/DAY
     Route: 048
  9. LORAZEPAM [Concomitant]
     Dosage: UNK
     Route: 048

REACTIONS (15)
  - COMMUNICATION DISORDER [None]
  - DECREASED APPETITE [None]
  - DEMENTIA [None]
  - DEREALISATION [None]
  - DIZZINESS [None]
  - FATIGUE [None]
  - FEELING ABNORMAL [None]
  - FEELING HOT [None]
  - FOOD POISONING [None]
  - HALLUCINATION, VISUAL [None]
  - NAUSEA [None]
  - POOR QUALITY SLEEP [None]
  - SUICIDE ATTEMPT [None]
  - VOMITING [None]
  - WHITE BLOOD CELL COUNT INCREASED [None]
